FAERS Safety Report 26152429 (Version 2)
Quarter: 2025Q4

REPORT INFORMATION
  Report Type: Spontaneous
  Country: GB (occurrence: GB)
  Receive Date: 20251214
  Receipt Date: 20251226
  Transmission Date: 20260117
  Serious: Yes (Hospitalization)
  Sender: ROCHE
  Company Number: GB-ROCHE-10000457604

PATIENT
  Age: 32 Year
  Sex: Female

DRUGS (6)
  1. EVRYSDI [Suspect]
     Active Substance: RISDIPLAM
     Indication: Spinal muscular atrophy
     Route: 048
     Dates: start: 20230214
  2. COTRIMOXAZOLE [Concomitant]
     Active Substance: SULFAMETHOXAZOLE\TRIMETHOPRIM
     Indication: Product used for unknown indication
     Dosage: 80MG/400MG TABLETS (3 DAYS)
     Route: 048
     Dates: end: 20251213
  3. CERAZETTE OD [Concomitant]
     Indication: Contraception
  4. LOSARTAN 25MG OD [Concomitant]
     Indication: Hypertension
  5. VANIQA 11.5% CREAM [Concomitant]
     Indication: Polycystic ovarian syndrome
     Dosage: 11.5 PERCENT CREAM
  6. FULTIUM D3 800UD [Concomitant]
     Indication: Nutritional supplementation
     Dosage: 800UD

REACTIONS (2)
  - Nephrolithiasis [Unknown]
  - Pyrexia [Unknown]

NARRATIVE: CASE EVENT DATE: 20251209
